FAERS Safety Report 13669188 (Version 1)
Quarter: 2017Q2

REPORT INFORMATION
  Report Type: Spontaneous
  Country: CN (occurrence: CN)
  Receive Date: 20170620
  Receipt Date: 20170620
  Transmission Date: 20170830
  Serious: Yes (Other)
  Sender: FDA-Public Use
  Company Number: CN-MERCK KGAA-2022269

PATIENT
  Sex: Female
  Weight: 56 kg

DRUGS (1)
  1. NOVOTHYROX [Suspect]
     Active Substance: LEVOTHYROXINE SODIUM
     Indication: HYPOTHYROIDISM
     Route: 048

REACTIONS (8)
  - Constipation [Unknown]
  - Abortion early [Recovered/Resolved]
  - Dry skin [Unknown]
  - Discomfort [Unknown]
  - Insomnia [Unknown]
  - Weight increased [Unknown]
  - Maternal exposure during pregnancy [Recovered/Resolved]
  - Blood thyroid stimulating hormone abnormal [Unknown]
